FAERS Safety Report 23501608 (Version 1)
Quarter: 2024Q1

REPORT INFORMATION
  Report Type: Spontaneous
  Country: GB (occurrence: GB)
  Receive Date: 20240208
  Receipt Date: 20240208
  Transmission Date: 20240409
  Serious: Yes (Other)
  Sender: FDA-Public Use
  Company Number: None

PATIENT
  Age: 50 Year
  Sex: Male
  Weight: 74 kg

DRUGS (7)
  1. CANDESARTAN [Suspect]
     Active Substance: CANDESARTAN
     Indication: Product used for unknown indication
     Dosage: 8 MILLIGRAM, QD (TAKE ONE ONCE DAILY IN THE EVENING)
     Route: 065
     Dates: start: 20221028
  2. AMLODIPINE [Concomitant]
     Active Substance: AMLODIPINE BESYLATE
     Dosage: 1 DOSAGE FORM, QD, TAKE ONE TABLET IN THE MORNING TO REDUCE BLOOD
     Route: 065
     Dates: start: 20240115
  3. BETAMETHASONE VALERATE [Concomitant]
     Active Substance: BETAMETHASONE VALERATE
     Dosage: 1 DOSAGE FORM, BID, THIN LAYER TWICE DIALY FOR 1-2 WEEKS ON BODY
     Route: 065
     Dates: start: 20230614
  4. CETIRIZINE [Concomitant]
     Active Substance: CETIRIZINE HYDROCHLORIDE
     Dosage: 1 DOSAGE FORM, QD
     Route: 065
     Dates: start: 20220921
  5. PARAFFIN\WAX, EMULSIFYING [Concomitant]
     Active Substance: PARAFFIN\WAX, EMULSIFYING
     Dosage: USE AS DIRECTED
     Route: 065
     Dates: start: 20230503
  6. ESOMEPRAZOLE [Concomitant]
     Active Substance: ESOMEPRAZOLE
     Dosage: TAKE ONE DAILY
     Route: 065
     Dates: start: 20231023
  7. FEXOFENADINE [Concomitant]
     Active Substance: FEXOFENADINE HYDROCHLORIDE
     Dosage: ONE PER DAY
     Route: 065
     Dates: start: 20230503

REACTIONS (1)
  - Swelling face [Recovered/Resolved]
